FAERS Safety Report 6255618-0 (Version None)
Quarter: 2009Q3

REPORT INFORMATION
  Report Type: 
  Country: None (occurrence: None)
  Receive Date: 20090701
  Receipt Date: 20090618
  Transmission Date: 20100115
  Serious: Yes (Other)
  Sender: FDA-Public Use
  Company Number: 237734J08USA

PATIENT
  Age: 47 Year
  Sex: Female

DRUGS (10)
  1. REBIF [Suspect]
     Indication: MULTIPLE SCLEROSIS
     Dosage: 44 MCG, 3 IN 1 WEEKS, SUBCUTANEOUS
     Route: 058
     Dates: start: 20080616
  2. SYNTHROID [Concomitant]
  3. ZANAFLEX [Concomitant]
  4. AXID (NIZATIDIINE) [Concomitant]
  5. BUSPAR [Concomitant]
  6. COUMADIN [Concomitant]
  7. CELEBREX [Concomitant]
  8. CALCIUM (CALCIUM-SANDOZ) [Concomitant]
  9. MAGNESIUM (MAGNESIUM HYDROXIDE) [Concomitant]
  10. TYLENOL [Concomitant]

REACTIONS (1)
  - DIABETES MELLITUS [None]
